FAERS Safety Report 4386821-2 (Version None)
Quarter: 2004Q2

REPORT INFORMATION
  Report Type: 
  Country: None (occurrence: None)
  Receive Date: 20040628
  Receipt Date: 20040628
  Transmission Date: 20050107
  Serious: Yes (Disabling)
  Sender: FDA-Public Use
  Company Number: None

PATIENT
  Sex: Female
  Weight: 65.7716 kg

DRUGS (3)
  1. VALTREX [Suspect]
     Indication: HERPES VIRUS INFECTION
     Dosage: 1000 MG/DAY AS 500 MG 2X/DAY
     Dates: start: 20010301, end: 20040301
  2. LEVOXYL [Concomitant]
  3. TYLENOL [Concomitant]

REACTIONS (13)
  - ARTHRALGIA [None]
  - ARTHROPATHY [None]
  - BIOPSY SKIN ABNORMAL [None]
  - COMPLEMENT FACTOR C3 DECREASED [None]
  - FINGER DEFORMITY [None]
  - GINGIVAL RECESSION [None]
  - IMMUNE SYSTEM DISORDER [None]
  - JOINT CREPITATION [None]
  - PSEUDOXANTHOMA ELASTICUM [None]
  - RASH PRURITIC [None]
  - SKIN ATROPHY [None]
  - SKIN DISORDER [None]
  - SKIN LESION [None]
